FAERS Safety Report 7554783-2 (Version None)
Quarter: 2011Q2

REPORT INFORMATION
  Report Type: 
  Country: None (occurrence: None)
  Receive Date: 20110617
  Receipt Date: 20110608
  Transmission Date: 20111010
  Serious: Yes (Hospitalization, Other)
  Sender: FDA-Public Use
  Company Number: CH-BRISTOL-MYERS SQUIBB COMPANY-15818065

PATIENT
  Age: 63 Year
  Sex: Female
  Weight: 56 kg

DRUGS (9)
  1. PRIMPERAN TAB [Concomitant]
     Indication: NAUSEA
     Dosage: 4 AS NECESSARY
     Route: 040
     Dates: start: 20110503
  2. ACETAMINOPHEN [Concomitant]
     Indication: PAIN
     Dosage: 4 AS NECESSARY
     Route: 041
     Dates: start: 20110509
  3. IDARUBICIN HYDROCHLORIDE [Interacting]
     Indication: ACUTE MYELOID LEUKAEMIA
     Dosage: INDUCTION: MAR-2011 PRESENT CYCLE: FROM 05MAY2011
     Route: 041
     Dates: start: 20110301, end: 20110507
  4. PRIMPERAN TAB [Concomitant]
     Indication: VOMITING
     Dosage: 4 AS NECESSARY
     Route: 040
     Dates: start: 20110503
  5. LIQUAEMIN INJ [Concomitant]
     Route: 058
     Dates: start: 20110509, end: 20110513
  6. CYTOSAR-U [Interacting]
     Indication: ACUTE MYELOID LEUKAEMIA
     Dosage: INDUCTION: MAR-2011 PRESENT CYCLE: FROM 05MAY2011
     Route: 041
     Dates: start: 20110301, end: 20110507
  7. SPRYCEL [Suspect]
     Indication: ACUTE MYELOID LEUKAEMIA
     Route: 048
     Dates: start: 20110311, end: 20110509
  8. TORSEMIDE [Concomitant]
     Indication: OEDEMA
     Route: 048
     Dates: start: 20110509, end: 20110513
  9. LORAZEPAM [Concomitant]
     Indication: ANXIETY DISORDER
     Route: 060
     Dates: start: 20110503

REACTIONS (8)
  - RENAL FAILURE ACUTE [None]
  - CEREBELLAR ATAXIA [None]
  - ACUTE PULMONARY OEDEMA [None]
  - NEUROTOXICITY [None]
  - CEREBELLAR SYNDROME [None]
  - DYSARTHRIA [None]
  - AGRANULOCYTOSIS [None]
  - DRUG INTERACTION [None]
